FAERS Safety Report 9703917 (Version 1)
Quarter: 2013Q4

REPORT INFORMATION
  Report Type: Spontaneous
  Country: BR (occurrence: BR)
  Receive Date: 20131122
  Receipt Date: 20131122
  Transmission Date: 20140711
  Serious: Yes (Hospitalization, Other)
  Sender: FDA-Public Use
  Company Number: BR-AMGEN-BRASP2013082557

PATIENT
  Age: 79 Year
  Sex: Female
  Weight: 61 kg

DRUGS (6)
  1. PROLIA [Suspect]
     Indication: OSTEOPENIA
     Dosage: 60 MG, Q6MO CYCLIC
     Route: 042
     Dates: start: 20130714
  2. COLECALCIFEROL [Concomitant]
     Dosage: UNK
  3. BENICAR HCT [Concomitant]
     Dosage: UNK
  4. ATENOLOL [Concomitant]
     Dosage: UNK
  5. PURAN T4 [Concomitant]
     Dosage: UNK
  6. ROSUVASTATIN [Concomitant]
     Dosage: UNK

REACTIONS (2)
  - Urinary tract infection [Recovering/Resolving]
  - Cataract [Unknown]
